FAERS Safety Report 5482566-6 (Version None)
Quarter: 2007Q4

REPORT INFORMATION
  Report Type: 
  Country: None (occurrence: None)
  Receive Date: 20071011
  Receipt Date: 20070710
  Transmission Date: 20080405
  Serious: No
  Sender: FDA-Public Use
  Company Number: A0662832A

PATIENT
  Age: 51 Year
  Sex: Female

DRUGS (15)
  1. TYKERB [Suspect]
     Indication: BREAST CANCER
     Dosage: 1250MG PER DAY
     Route: 048
     Dates: start: 20070706, end: 20070708
  2. XELODA [Concomitant]
  3. CALCIUM [Concomitant]
  4. VITAMIN D [Concomitant]
  5. ZOMETA [Concomitant]
  6. UNKNOWN [Concomitant]
  7. CLOVE [Concomitant]
  8. FUROSEMIDE [Concomitant]
  9. THYME [Concomitant]
  10. UNKNOWN [Concomitant]
     Route: 061
  11. ORANGE OIL EXTRACT [Concomitant]
     Route: 061
  12. PEPPERMINT OIL [Concomitant]
     Route: 061
  13. LAVENDER OIL [Concomitant]
     Route: 061
  14. FRUIT [Concomitant]
  15. ORANGES [Concomitant]

REACTIONS (1)
  - DIARRHOEA [None]
